FAERS Safety Report 5738384-4 (Version None)
Quarter: 2008Q2

REPORT INFORMATION
  Report Type: 
  Country: None (occurrence: None)
  Receive Date: 20080513
  Receipt Date: 20080501
  Transmission Date: 20081010
  Serious: Yes (Other)
  Sender: FDA-Public Use
  Company Number: 2008011519

PATIENT
  Age: 47 Year
  Sex: Male
  Weight: 79.3795 kg

DRUGS (1)
  1. FRESHBURST LISTERINE (MENTHOL, METHYL SALICYLATE, EUCALYPTOL, THYMOL) [Suspect]
     Dosage: TWICE A DAY OR MORE,ORAL
     Route: 048
     Dates: start: 20080301, end: 20080430

REACTIONS (4)
  - ORAL DISCOMFORT [None]
  - ORAL DISORDER [None]
  - ORAL PAIN [None]
  - STOMATITIS [None]
